FAERS Safety Report 7040658-4 (Version None)
Quarter: 2010Q4

REPORT INFORMATION
  Report Type: 
  Country: None (occurrence: None)
  Receive Date: 20101013
  Receipt Date: 20101006
  Transmission Date: 20110411
  Serious: Yes (Other)
  Sender: FDA-Public Use
  Company Number: CA-AMGEN-KDL443201

PATIENT
  Sex: Male
  Weight: 116 kg

DRUGS (4)
  1. ENBREL [Suspect]
     Indication: ANKYLOSING SPONDYLITIS
     Route: 058
     Dates: start: 20100628, end: 20101002
  2. IBUPROFEN [Concomitant]
  3. METHOTREXATE [Concomitant]
  4. FOLIC ACID [Concomitant]

REACTIONS (3)
  - HYPOAESTHESIA [None]
  - HYPOAESTHESIA FACIAL [None]
  - PARAESTHESIA [None]
